FAERS Safety Report 18183644 (Version 2)
Quarter: 2020Q3

REPORT INFORMATION
  Report Type: Spontaneous
  Country: DE (occurrence: DE)
  Receive Date: 20200822
  Receipt Date: 20200907
  Transmission Date: 20201103
  Serious: Yes (Hospitalization, Other)
  Sender: FDA-Public Use
  Company Number: DE-B.I. PHARMACEUTICALS,INC./RIDGEFIELD-2020-BI-043066

PATIENT
  Age: 61 Year
  Sex: Male

DRUGS (1)
  1. OFEV [Suspect]
     Active Substance: NINTEDANIB
     Indication: IDIOPATHIC PULMONARY FIBROSIS
     Route: 048
     Dates: start: 20180815

REACTIONS (6)
  - Cholestasis [Unknown]
  - Yellow skin [Unknown]
  - Skin discolouration [Unknown]
  - Hepatic neoplasm [Unknown]
  - Biliary neoplasm [Unknown]
  - Liver function test increased [Recovering/Resolving]
